FAERS Safety Report 5010489-5 (Version None)
Quarter: 2006Q2

REPORT INFORMATION
  Report Type: 
  Country: None (occurrence: None)
  Receive Date: 20060525
  Receipt Date: 20050620
  Transmission Date: 20061013
  Serious: No
  Sender: FDA-Public Use
  Company Number: US-GLAXOSMITHKLINE-A0563379A

PATIENT
  Age: 66 Year
  Sex: Female

DRUGS (2)
  1. BACTROBAN [Suspect]
     Indication: SKIN INFECTION
     Route: 045
     Dates: start: 20050616, end: 20050616
  2. DIOVAN [Concomitant]

REACTIONS (2)
  - NASAL DISCOMFORT [None]
  - NASAL ULCER [None]
